FAERS Safety Report 18831597 (Version 1)
Quarter: 2021Q1

REPORT INFORMATION
  Report Type: Spontaneous
  Country: US (occurrence: US)
  Receive Date: 20210202
  Receipt Date: 20210202
  Transmission Date: 20210419
  Serious: Yes (Other)
  Sender: FDA-Public Use
  Company Number: None

PATIENT
  Age: 68 Year
  Sex: Male

DRUGS (3)
  1. EVEROLIMUS 0.5MG [Suspect]
     Active Substance: EVEROLIMUS
     Indication: LIVER TRANSPLANT
     Route: 048
     Dates: start: 20200811
  2. GABAPENTIN. [Concomitant]
     Active Substance: GABAPENTIN
  3. XARELTO [Concomitant]
     Active Substance: RIVAROXABAN

REACTIONS (3)
  - Skin irritation [None]
  - Therapy interrupted [None]
  - Peripheral artery occlusion [None]

NARRATIVE: CASE EVENT DATE: 202101
